FAERS Safety Report 10080733 (Version 2)
Quarter: 2014Q2

REPORT INFORMATION
  Report Type: Spontaneous
  Country: US (occurrence: US)
  Receive Date: 20140416
  Receipt Date: 20140612
  Transmission Date: 20141212
  Serious: Yes (Hospitalization, Other)
  Sender: FDA-Public Use
  Company Number: US-BAYER-2014-054639

PATIENT
  Age: 47 Year
  Sex: Female

DRUGS (3)
  1. YASMIN [Suspect]
  2. PAXIL [Concomitant]
     Dosage: 25 MG, UNK
  3. VICODIN [Concomitant]

REACTIONS (4)
  - Biliary colic [None]
  - Cholelithiasis [None]
  - Pulmonary embolism [None]
  - Pulmonary infarction [None]
